FAERS Safety Report 10052192 (Version 2)
Quarter: 2014Q2

REPORT INFORMATION
  Report Type: Spontaneous
  Country: BR (occurrence: BR)
  Receive Date: 20140402
  Receipt Date: 20140507
  Transmission Date: 20141212
  Serious: Yes (Other)
  Sender: FDA-Public Use
  Company Number: BR-ASTRAZENECA-2014SE22002

PATIENT
  Sex: Female

DRUGS (11)
  1. BRILINTA [Suspect]
     Route: 048
     Dates: start: 20130601
  2. GALVUS MET [Suspect]
     Route: 065
  3. CONCOR [Concomitant]
  4. LIPITOR [Concomitant]
  5. VASTAREL [Concomitant]
  6. NATRILIX [Concomitant]
  7. ASA [Concomitant]
  8. DIAMICRON [Concomitant]
     Indication: DIABETES MELLITUS
  9. INSULIN [Concomitant]
  10. ENDOFOLIN [Concomitant]
  11. NEUTROFER [Concomitant]

REACTIONS (1)
  - Anaemia [Recovering/Resolving]
